FAERS Safety Report 6637055-X (Version None)
Quarter: 2010Q1

REPORT INFORMATION
  Report Type: 
  Country: None (occurrence: None)
  Receive Date: 20100310
  Receipt Date: 20100226
  Transmission Date: 20100710
  Serious: Yes (Death)
  Sender: FDA-Public Use
  Company Number: 2010AL001279

PATIENT
  Age: 74 Year
  Sex: Female

DRUGS (2)
  1. PROPRANOLOL HYDROCHLORIDE [Suspect]
     Dosage: 40 MG
  2. AMOXICILLIN [Concomitant]

REACTIONS (4)
  - DEHYDRATION [None]
  - DRUG DISPENSING ERROR [None]
  - FALL [None]
  - WHITE BLOOD CELL COUNT INCREASED [None]
